FAERS Safety Report 24745765 (Version 1)
Quarter: 2024Q4

REPORT INFORMATION
  Report Type: Spontaneous
  Country: US (occurrence: US)
  Receive Date: 20241218
  Receipt Date: 20241218
  Transmission Date: 20250114
  Serious: No
  Sender: SANOFI AVENTIS
  Company Number: US-SA-2024SA370005

PATIENT
  Age: 23 Year
  Sex: Female

DRUGS (4)
  1. DUPIXENT [Suspect]
     Active Substance: DUPILUMAB
     Indication: Dermatitis atopic
     Dosage: 300 MG, QOW
     Route: 058
     Dates: start: 20231227
  2. DUPIXENT [Suspect]
     Active Substance: DUPILUMAB
     Dosage: MISSED TAKING MEDICATION 2 TIMES DUE TO DOCTOR AGREED SHE COULD SPACE OUT THE DOSES SO SHE WASN^T TA
     Route: 058
  3. LARIN 1.5/30 [Concomitant]
     Active Substance: ETHINYL ESTRADIOL\NORETHINDRONE ACETATE
     Dosage: UNK
  4. ZYRTEC [Concomitant]
     Active Substance: CETIRIZINE HYDROCHLORIDE
     Dosage: UNK

REACTIONS (1)
  - Off label use [Unknown]
